FAERS Safety Report 6437712-4 (Version None)
Quarter: 2009Q4

REPORT INFORMATION
  Report Type: 
  Country: None (occurrence: None)
  Receive Date: 20091112
  Receipt Date: 20091104
  Transmission Date: 20100525
  Serious: Yes (Other)
  Sender: FDA-Public Use
  Company Number: US-PFIZER INC-2009273193

PATIENT
  Sex: Female

DRUGS (2)
  1. VIAGRA [Suspect]
  2. CITALOPRAM [Suspect]

REACTIONS (3)
  - DRUG INTERACTION [None]
  - FEELING ABNORMAL [None]
  - HALLUCINATION [None]
